FAERS Safety Report 5375755-2 (Version None)
Quarter: 2007Q2

REPORT INFORMATION
  Report Type: 
  Country: None (occurrence: None)
  Receive Date: 20070628
  Receipt Date: 20070614
  Transmission Date: 20071010
  Serious: Yes (Hospitalization)
  Sender: FDA-Public Use
  Company Number: 233678K06USA

PATIENT
  Age: 52 Year
  Sex: Male

DRUGS (5)
  1. REBIF (INTERRERON BETA) [Suspect]
     Indication: MULTIPLE SCLEROSIS
     Dosage: 44 MCG, 3 IN 1 WEEKS, SUBCUTANEOUS
     Route: 058
     Dates: start: 20060311
  2. VICODIN [Concomitant]
  3. ROBAXIN [Concomitant]
  4. STEROIDS (CORTICOSTEROIDS) [Concomitant]
  5. ANTIEPILEPTICS [Concomitant]

REACTIONS (1)
  - CONVULSION [None]
